FAERS Safety Report 5132660-4 (Version None)
Quarter: 2006Q4

REPORT INFORMATION
  Report Type: 
  Country: None (occurrence: None)
  Receive Date: 20061017
  Receipt Date: 20061004
  Transmission Date: 20070319
  Serious: Yes (Hospitalization, Other)
  Sender: FDA-Public Use
  Company Number: 2006BH012339

PATIENT
  Age: 34 Year
  Sex: Female
  Weight: 71 kg

DRUGS (1)
  1. SUPRANE [Suspect]
     Indication: DRUG USE FOR UNKNOWN INDICATION
     Dosage: ONCE; INH
     Route: 055
     Dates: start: 20060728

REACTIONS (2)
  - ACCIDENTAL EXPOSURE [None]
  - LOSS OF CONSCIOUSNESS [None]
